FAERS Safety Report 8530337 (Version 2)
Quarter: 2013Q1

REPORT INFORMATION
  Report Type: Spontaneous
  Country: ES (occurrence: ES)
  Receive Date: 20120425
  Receipt Date: 20130320
  Transmission Date: 20140127
  Serious: Yes (Death, Hospitalization)
  Sender: FDA-Public Use
  Company Number: ES-ALEXION PHARMACEUTICALS INC.-A201200685

PATIENT
  Age: 72 Year
  Sex: Male

DRUGS (8)
  1. SOLIRIS 300MG [Suspect]
     Indication: PAROXYSMAL NOCTURNAL HAEMOGLOBINURIA
     Dosage: 600 MG, QW
     Route: 042
     Dates: start: 200901
  2. SOLIRIS 300MG [Suspect]
     Dosage: 900 MG, Q2W
     Route: 042
     Dates: start: 200903
  3. METFORMINA [Concomitant]
     Indication: DIABETES MELLITUS
  4. REPAGLINIDE [Concomitant]
     Indication: DIABETES MELLITUS
  5. FINASTERIDE [Concomitant]
     Indication: BENIGN PROSTATIC HYPERPLASIA
  6. TAMSULOSIN [Concomitant]
     Indication: BENIGN PROSTATIC HYPERPLASIA
  7. OMEPRAZOLE [Concomitant]
  8. AAS [Concomitant]

REACTIONS (1)
  - Biliary sepsis [Fatal]
